FAERS Safety Report 25001729 (Version 5)
Quarter: 2025Q3

REPORT INFORMATION
  Report Type: Report from Study
  Country: CA (occurrence: CA)
  Receive Date: 20250224
  Receipt Date: 20250929
  Transmission Date: 20251021
  Serious: Yes (Hospitalization, Other)
  Sender: TAKEDA
  Company Number: CA-TAKEDA-2025TUS016552

PATIENT
  Age: 73 Year
  Sex: Female

DRUGS (14)
  1. VEDOLIZUMAB [Suspect]
     Active Substance: VEDOLIZUMAB
     Indication: Crohn^s disease
  2. VEDOLIZUMAB [Suspect]
     Active Substance: VEDOLIZUMAB
  3. VEDOLIZUMAB [Suspect]
     Active Substance: VEDOLIZUMAB
  4. PROZAC [Suspect]
     Active Substance: FLUOXETINE HYDROCHLORIDE
     Indication: Product used for unknown indication
  5. LYRICA [Concomitant]
     Active Substance: PREGABALIN
  6. METAMUCIL [Concomitant]
     Active Substance: PLANTAGO SEED
  7. RIVOTRIL [Concomitant]
     Active Substance: CLONAZEPAM
  8. NEXIUM [Concomitant]
     Active Substance: ESOMEPRAZOLE MAGNESIUM
  9. WELLBUTRIN [Concomitant]
     Active Substance: BUPROPION HYDROCHLORIDE
  10. FAMVIR [Concomitant]
     Active Substance: FAMCICLOVIR
  11. CALCIUM [Concomitant]
     Active Substance: CALCIUM
  12. ZYPREXA [Concomitant]
     Active Substance: OLANZAPINE
  13. MIRTAZAPINE [Concomitant]
     Active Substance: MIRTAZAPINE
  14. IMURAN [Concomitant]
     Active Substance: AZATHIOPRINE

REACTIONS (12)
  - Anxiety [Unknown]
  - Hepatic pain [Unknown]
  - Gastric ulcer [Unknown]
  - Abdominal pain upper [Unknown]
  - Asthenia [Unknown]
  - Fall [Unknown]
  - Confusional state [Unknown]
  - Abdominal pain lower [Unknown]
  - Enteritis [Unknown]
  - Speech disorder [Unknown]
  - Cyst [Unknown]
  - Malaise [Unknown]

NARRATIVE: CASE EVENT DATE: 20250212
